FAERS Safety Report 17851810 (Version 1)
Quarter: 2020Q2

REPORT INFORMATION
  Report Type: Spontaneous
  Country: US (occurrence: US)
  Receive Date: 20200602
  Receipt Date: 20200602
  Transmission Date: 20200714
  Serious: Yes (Other)
  Sender: FDA-Public Use
  Company Number: US-AMGEN-USASP2020085023

PATIENT
  Age: 59 Year

DRUGS (1)
  1. PANITUMUMAB [Suspect]
     Active Substance: PANITUMUMAB
     Indication: DUCTAL ADENOCARCINOMA OF PANCREAS
     Dosage: 100 MG LOADING DOSE AND THEN 25 MG 2-5 DAYS BEFORE SURGERY
     Route: 042

REACTIONS (8)
  - Abdominal pain [Unknown]
  - Hypertension [Unknown]
  - Atrial fibrillation [Unknown]
  - Ileus [Unknown]
  - Nausea [Unknown]
  - Eructation [Unknown]
  - Sinus tachycardia [Unknown]
  - Off label use [Unknown]
